FAERS Safety Report 7904649-0 (Version None)
Quarter: 2011Q4

REPORT INFORMATION
  Report Type: 
  Country: None (occurrence: None)
  Receive Date: 20111109
  Receipt Date: 20111028
  Transmission Date: 20120403
  Serious: Yes (Hospitalization, Congenital Anomaly)
  Sender: FDA-Public Use
  Company Number: US-GLAXOSMITHKLINE-A0950473A

PATIENT
  Sex: Female
  Weight: 3.6 kg

DRUGS (1)
  1. PAXIL [Suspect]
     Indication: ANXIETY
     Route: 064

REACTIONS (4)
  - CHOANAL ATRESIA [None]
  - NASAL OBSTRUCTION [None]
  - DYSMORPHISM [None]
  - FOETAL EXPOSURE DURING PREGNANCY [None]
